FAERS Safety Report 12216388 (Version 2)
Quarter: 2016Q2

REPORT INFORMATION
  Report Type: Spontaneous
  Country: GB (occurrence: GB)
  Receive Date: 20160329
  Receipt Date: 20160411
  Transmission Date: 20160815
  Serious: Yes (Death, Hospitalization, Other)
  Sender: FDA-Public Use
  Company Number: GB-AUROBINDO-AUR-APL-2016-01182

PATIENT

DRUGS (3)
  1. PARACETAMOL [Suspect]
     Active Substance: ACETAMINOPHEN
     Indication: OSTEOPOROSIS
     Dosage: UNK
     Route: 065
  2. LEMSIP                             /00575801/ [Suspect]
     Active Substance: ACETAMINOPHEN\ASCORBIC ACID\PHENYLEPHRINE HYDROCHLORIDE\SODIUM CITRATE
     Indication: INFLUENZA
     Dosage: UNK
     Route: 065
     Dates: start: 2015
  3. PARACETAMOL [Suspect]
     Active Substance: ACETAMINOPHEN
     Indication: PAIN
     Dosage: UNK
     Route: 065

REACTIONS (8)
  - Multiple organ dysfunction syndrome [Fatal]
  - Toxicity to various agents [Fatal]
  - Restlessness [Fatal]
  - Renal failure [Fatal]
  - Hepatic failure [Fatal]
  - Condition aggravated [Unknown]
  - Somnolence [Unknown]
  - Overdose [Fatal]

NARRATIVE: CASE EVENT DATE: 20151029
